FAERS Safety Report 19253826 (Version 1)
Quarter: 2021Q2

REPORT INFORMATION
  Report Type: Spontaneous
  Country: US (occurrence: US)
  Receive Date: 20210513
  Receipt Date: 20210513
  Transmission Date: 20210717
  Serious: Yes (Other)
  Sender: FDA-Public Use
  Company Number: US-SA-2021SA156626

PATIENT
  Age: 33 Year
  Sex: Female

DRUGS (2)
  1. ZANTAC [Suspect]
     Active Substance: RANITIDINE HYDROCHLORIDE
     Indication: GASTROOESOPHAGEAL REFLUX DISEASE
     Dosage: 150 MG, OTHER
     Dates: start: 200105, end: 201209
  2. ZANTAC [Suspect]
     Active Substance: RANITIDINE HYDROCHLORIDE
     Indication: HYPERCHLORHYDRIA

REACTIONS (3)
  - Breast cancer stage I [Unknown]
  - Bladder cancer stage I, with cancer in situ [Unknown]
  - Uterine cancer [Unknown]

NARRATIVE: CASE EVENT DATE: 20120301
